FAERS Safety Report 12058251 (Version 1)
Quarter: 2016Q1

REPORT INFORMATION
  Report Type: Spontaneous
  Country: US (occurrence: None)
  Receive Date: 20160209
  Receipt Date: 20160209
  Transmission Date: 20160526
  Serious: Yes (Other)
  Sender: FDA-Public Use
  Company Number: None

PATIENT
  Age: 84 Year
  Sex: Male
  Weight: 68.04 kg

DRUGS (5)
  1. AZILECT [Concomitant]
     Active Substance: RASAGILINE MESYLATE
  2. RYTARY [Concomitant]
     Active Substance: CARBIDOPA\LEVODOPA
     Indication: BASAL CELL CARCINOMA
     Dosage: 1/2 OF ENVELOPE BEDTIME ON THE SKIN
  3. IMIQUIMOD CREAM 5% [Suspect]
     Active Substance: IMIQUIMOD
     Indication: BASAL CELL CARCINOMA
     Dosage: 1/2 OF ENVELOPE BEDTIME ON THE SKIN
  4. CITRACAL [Concomitant]
     Active Substance: CALCIUM CITRATE
  5. CLOBETASOL PROPIONATE. [Concomitant]
     Active Substance: CLOBETASOL PROPIONATE

REACTIONS (10)
  - Skin exfoliation [None]
  - Pruritus generalised [None]
  - Fatigue [None]
  - Rash maculo-papular [None]
  - Erythema [None]
  - Lymphadenopathy [None]
  - Pruritus [None]
  - Lymph node pain [None]
  - Joint swelling [None]
  - Skin texture abnormal [None]

NARRATIVE: CASE EVENT DATE: 20160126
